FAERS Safety Report 22613225 (Version 9)
Quarter: 2024Q2

REPORT INFORMATION
  Report Type: Report from Study
  Country: US (occurrence: US)
  Receive Date: 20230618
  Receipt Date: 20240405
  Transmission Date: 20240716
  Serious: Yes (Hospitalization, Other)
  Sender: FDA-Public Use
  Company Number: US-ABBVIE-5290647

PATIENT
  Sex: Female

DRUGS (7)
  1. IMBRUVICA [Suspect]
     Active Substance: IBRUTINIB
     Indication: Chronic lymphocytic leukaemia
     Route: 048
     Dates: start: 20221115
  2. IMBRUVICA [Suspect]
     Active Substance: IBRUTINIB
     Indication: Chronic lymphocytic leukaemia
     Route: 048
     Dates: start: 20230612
  3. IMBRUVICA [Suspect]
     Active Substance: IBRUTINIB
     Indication: Chronic lymphocytic leukaemia
     Route: 048
     Dates: start: 20230329, end: 20230608
  4. IMBRUVICA [Suspect]
     Active Substance: IBRUTINIB
     Indication: Chronic lymphocytic leukaemia
     Route: 048
  5. IMBRUVICA [Suspect]
     Active Substance: IBRUTINIB
     Indication: Chronic lymphocytic leukaemia
     Dosage: LAST ADMIN DATE MAR 2023
     Route: 048
     Dates: start: 20230309
  6. IMBRUVICA [Suspect]
     Active Substance: IBRUTINIB
     Indication: Chronic lymphocytic leukaemia
     Route: 048
  7. IMBRUVICA [Suspect]
     Active Substance: IBRUTINIB
     Indication: Chronic lymphocytic leukaemia
     Route: 048
     Dates: start: 202211, end: 202211

REACTIONS (18)
  - Road traffic accident [Unknown]
  - Osteoarthritis [Unknown]
  - Dysstasia [Not Recovered/Not Resolved]
  - Gait inability [Unknown]
  - Bipolar disorder [Unknown]
  - Wound haemorrhage [Not Recovered/Not Resolved]
  - Asthenia [Unknown]
  - Unevaluable event [Unknown]
  - Blood iron decreased [Unknown]
  - Nasopharyngitis [Unknown]
  - Urinary tract infection [Unknown]
  - Fatigue [Unknown]
  - Peripheral swelling [Unknown]
  - Loss of consciousness [Unknown]
  - Limb injury [Not Recovered/Not Resolved]
  - Traumatic haematoma [Recovering/Resolving]
  - Back pain [Unknown]
  - Wound secretion [Not Recovered/Not Resolved]

NARRATIVE: CASE EVENT DATE: 20230101
